FAERS Safety Report 9188934 (Version 1)
Quarter: 2013Q1

REPORT INFORMATION
  Report Type: Spontaneous
  Country: GB (occurrence: GB)
  Receive Date: 20130326
  Receipt Date: 20130326
  Transmission Date: 20140127
  Serious: Yes (Hospitalization, Other)
  Sender: FDA-Public Use
  Company Number: GB-B.I. PHARMACEUTICALS,INC./RIDGEFIELD-2013-UK-00396UK

PATIENT
  Age: 71 Year
  Sex: Female
  Weight: 98 kg

DRUGS (7)
  1. PRADAXA [Suspect]
     Indication: HIP ARTHROPLASTY
     Dosage: 220 MG
     Route: 048
     Dates: start: 20130223, end: 20130302
  2. AMLODIPINE [Concomitant]
  3. CLEXANE [Concomitant]
  4. NAPROXEN [Concomitant]
  5. OMEPRAZOLE [Concomitant]
  6. PRAVASTATIN [Concomitant]
  7. RAMIPRIL [Concomitant]

REACTIONS (5)
  - Haemorrhage [Not Recovered/Not Resolved]
  - Haematoma [Unknown]
  - Mobility decreased [Unknown]
  - Pain [Unknown]
  - Wound secretion [Not Recovered/Not Resolved]
